FAERS Safety Report 24339949 (Version 1)
Quarter: 2024Q3

REPORT INFORMATION
  Report Type: Spontaneous
  Country: US (occurrence: US)
  Receive Date: 20240919
  Receipt Date: 20240919
  Transmission Date: 20241017
  Serious: Yes (Hospitalization, Other)
  Sender: SANOFI AVENTIS
  Company Number: US-SA-SAC20240423000530

PATIENT
  Age: 20 Year
  Sex: Male

DRUGS (1)
  1. DUPIXENT [Suspect]
     Active Substance: DUPILUMAB
     Indication: Asthma
     Dosage: 300 MG, QOW
     Route: 058
     Dates: start: 202104, end: 202405

REACTIONS (6)
  - Hospitalisation [Unknown]
  - Autism spectrum disorder [Unknown]
  - Pneumonia [Unknown]
  - Epistaxis [Unknown]
  - Polyp [Unknown]
  - Rash [Unknown]

NARRATIVE: CASE EVENT DATE: 20240101
